FAERS Safety Report 23783025 (Version 3)
Quarter: 2024Q2

REPORT INFORMATION
  Report Type: Spontaneous
  Country: PL (occurrence: PL)
  Receive Date: 20240425
  Receipt Date: 20240619
  Transmission Date: 20240716
  Serious: Yes (Other)
  Sender: FDA-Public Use
  Company Number: PL-SA-SAC20240424001188

PATIENT
  Age: 22 Year
  Sex: Male

DRUGS (5)
  1. DUPILUMAB [Suspect]
     Active Substance: DUPILUMAB
     Indication: Dermatitis atopic
     Dosage: 300 MG, QOW
     Route: 065
     Dates: start: 20230926, end: 2024
  2. PROTOPIC [Concomitant]
     Active Substance: TACROLIMUS
     Indication: Dermatitis atopic
     Dosage: 2X PER DAY
  3. COLCHICINE [Concomitant]
     Active Substance: COLCHICINE
     Dosage: UNK
     Route: 048
  4. OLOPATADINE [Concomitant]
     Active Substance: OLOPATADINE
     Indication: Conjunctivitis allergic
     Dosage: 1 DROP 2X PER DAY
  5. MYBRACIN [Concomitant]
     Indication: Conjunctivitis allergic
     Dosage: UNK

REACTIONS (4)
  - Pericarditis [Recovering/Resolving]
  - Chest pain [Recovering/Resolving]
  - Pericardial effusion [Recovering/Resolving]
  - Exercise tolerance decreased [Recovering/Resolving]

NARRATIVE: CASE EVENT DATE: 20240326
